FAERS Safety Report 7509185-1 (Version None)
Quarter: 2011Q2

REPORT INFORMATION
  Report Type: 
  Country: None (occurrence: None)
  Receive Date: 20110527
  Receipt Date: 20110211
  Transmission Date: 20111010
  Serious: No
  Sender: FDA-Public Use
  Company Number: US-MYLANLABS-2011S1003150

PATIENT
  Age: 62 Year
  Sex: Female
  Weight: 80.29 kg

DRUGS (9)
  1. LORAZEPAM [Concomitant]
     Indication: ANXIETY
     Dates: start: 19990101
  2. GLYBURIDE [Concomitant]
     Indication: DIABETES MELLITUS
     Dosage: USING GLYBURIDE, 5MG X 4 DAILY
     Dates: start: 20080101
  3. METFORMIN HCL [Concomitant]
     Indication: DIABETES MELLITUS
     Dosage: USING METFORMIN, 500MG X 4 DAILY
     Dates: start: 20080101
  4. VICODIN [Concomitant]
     Indication: ARTHRITIS
     Dates: start: 20100101
  5. AMITRIPTYLINE HCL [Suspect]
     Indication: INSOMNIA
     Route: 048
  6. VITAMIN D [Concomitant]
     Dates: start: 20110101
  7. CARVEDILOL [Concomitant]
     Indication: BLOOD PRESSURE INCREASED
     Dates: start: 20090101
  8. IBUPROFEN [Concomitant]
     Indication: ARTHRITIS
     Dates: start: 20100101
  9. LISINOPRIL [Concomitant]
     Indication: BLOOD PRESSURE INCREASED
     Dosage: USING LISINOPRIL, 20MG X 2 DAILY
     Dates: start: 20100101

REACTIONS (3)
  - INSOMNIA [None]
  - DRUG INEFFECTIVE FOR UNAPPROVED INDICATION [None]
  - MEDICATION RESIDUE [None]
